FAERS Safety Report 10567747 (Version 1)
Quarter: 2014Q4

REPORT INFORMATION
  Report Type: Spontaneous
  Country: US (occurrence: None)
  Receive Date: 20141104
  Receipt Date: 20141104
  Transmission Date: 20150529
  Serious: Yes (Hospitalization, Other)
  Sender: FDA-Public Use
  Company Number: QSC-2014-0655

PATIENT
  Age: 39 Year
  Sex: Female
  Weight: 73 kg

DRUGS (4)
  1. GABAPENTIN (GABAPENTIN) [Concomitant]
     Active Substance: GABAPENTIN
  2. AMOXICILLIN (AMOXICILLIN) [Concomitant]
     Active Substance: AMOXICILLIN
  3. H.P. ACTHAR [Suspect]
     Active Substance: CORTICOTROPIN
     Indication: MULTIPLE SCLEROSIS RELAPSE
     Route: 058
     Dates: start: 20140909, end: 20140913
  4. BACLOFEN (BACLOFEN) [Concomitant]
     Active Substance: BACLOFEN

REACTIONS (7)
  - Dyspnoea [None]
  - Arrhythmia [None]
  - Cardiac flutter [None]
  - Hyperaesthesia [None]
  - Swelling face [None]
  - Generalised oedema [None]
  - Pruritus [None]

NARRATIVE: CASE EVENT DATE: 20140912
